FAERS Safety Report 5639258-X (Version None)
Quarter: 2008Q1

REPORT INFORMATION
  Report Type: 
  Country: None (occurrence: None)
  Receive Date: 20080226
  Receipt Date: 20080131
  Transmission Date: 20080703
  Serious: No
  Sender: FDA-Public Use
  Company Number: US-BOEHRINGER INGELHEIM GMBH, GERMANY-2008-BP-01551BP

PATIENT
  Sex: Male

DRUGS (4)
  1. SPIRIVA [Suspect]
     Indication: CHRONIC OBSTRUCTIVE PULMONARY DISEASE
     Route: 055
     Dates: start: 20071201
  2. SPIRIVA [Suspect]
     Indication: ASTHMA
  3. ASPIRIN [Concomitant]
  4. AMOXICILLIN [Concomitant]
     Indication: PROPHYLAXIS

REACTIONS (1)
  - VISION BLURRED [None]
